FAERS Safety Report 18526956 (Version 1)
Quarter: 2020Q4

REPORT INFORMATION
  Report Type: Spontaneous
  Country: US (occurrence: US)
  Receive Date: 20201120
  Receipt Date: 20201120
  Transmission Date: 20210114
  Serious: Yes (Hospitalization, Other)
  Sender: FDA-Public Use
  Company Number: US-LUNDBECK-DKLU3023963

PATIENT
  Age: 21 Year
  Sex: Female
  Weight: 34 kg

DRUGS (5)
  1. SABRIL [Suspect]
     Active Substance: VIGABATRIN
     Indication: BLINDNESS
  2. SABRIL [Suspect]
     Active Substance: VIGABATRIN
     Indication: EPILEPSY
  3. SABRIL [Suspect]
     Active Substance: VIGABATRIN
     Indication: FOCAL DYSCOGNITIVE SEIZURES
  4. SABRIL [Suspect]
     Active Substance: VIGABATRIN
     Indication: MICROPHTHALMOS
  5. SABRIL [Suspect]
     Active Substance: VIGABATRIN
     Indication: PARTIAL SEIZURES
     Route: 048

REACTIONS (1)
  - Respiratory failure [Unknown]

NARRATIVE: CASE EVENT DATE: 20201103
